FAERS Safety Report 16741402 (Version 1)
Quarter: 2019Q3

REPORT INFORMATION
  Report Type: Spontaneous
  Country: US (occurrence: US)
  Receive Date: 20190826
  Receipt Date: 20190826
  Transmission Date: 20191005
  Serious: Yes (Other)
  Sender: FDA-Public Use
  Company Number: US-VIRTUS PHARMACEUTICALS, LLC-2019VTS00048

PATIENT
  Age: 75 Year
  Sex: Female

DRUGS (5)
  1. METHOTREXATE. [Concomitant]
     Active Substance: METHOTREXATE
     Indication: RHEUMATOID ARTHRITIS
     Route: 065
  2. IV ANTIBIOTICS [Concomitant]
     Active Substance: UNSPECIFIED INGREDIENT
     Indication: SEPSIS
     Route: 042
  3. IV ANTIBIOTICS [Concomitant]
     Active Substance: UNSPECIFIED INGREDIENT
     Indication: URINARY TRACT INFECTION
  4. HYDROXYCHLOROQUINE [Concomitant]
     Active Substance: HYDROXYCHLOROQUINE
     Indication: RHEUMATOID ARTHRITIS
  5. DAPSONE. [Suspect]
     Active Substance: DAPSONE
     Indication: PNEUMOCYSTIS JIROVECII PNEUMONIA

REACTIONS (2)
  - Methaemoglobinaemia [Recovering/Resolving]
  - Pulmonary embolism [Recovering/Resolving]
